FAERS Safety Report 26083600 (Version 2)
Quarter: 2025Q4

REPORT INFORMATION
  Report Type: Report from Study
  Country: US (occurrence: US)
  Receive Date: 20251124
  Receipt Date: 20251230
  Transmission Date: 20260118
  Serious: Yes (Other)
  Sender: PFIZER
  Company Number: US-PFIZER INC-PV202500100076

PATIENT
  Age: 80 Year
  Sex: Female

DRUGS (4)
  1. IBRANCE [Suspect]
     Active Substance: PALBOCICLIB
     Indication: Breast cancer female
     Dosage: 125 MG, CYCLIC (1 TIME A DAY IN THE MORNING ON DAYS 1 TO 21 OF A 28 DAY CYCLE)
     Route: 048
     Dates: start: 20250727
  2. IBRANCE [Suspect]
     Active Substance: PALBOCICLIB
     Dosage: 125 MG, CYCLIC (1 TABLET 1 TIME A DAY ON DAYS 1 TO 21 OF A 28 DAY CYCLE)
     Route: 048
     Dates: start: 20250827
  3. IBRANCE [Suspect]
     Active Substance: PALBOCICLIB
     Dosage: 1-100 MG TABLET BY MOUTH 1 TIME A DAY IN THE MORNING ON DAYS 1 TO 21 OF A 28 DAY CYCLE
     Route: 048
     Dates: start: 20250727, end: 20251217
  4. LETROZOLE [Concomitant]
     Active Substance: LETROZOLE
     Dosage: UNK

REACTIONS (9)
  - Pulmonary fibrosis [Not Recovered/Not Resolved]
  - Pruritus [Not Recovered/Not Resolved]
  - Red blood cell count decreased [Unknown]
  - Fatigue [Not Recovered/Not Resolved]
  - Condition aggravated [Not Recovered/Not Resolved]
  - Localised infection [Not Recovered/Not Resolved]
  - White blood cell count decreased [Unknown]
  - Asthenia [Not Recovered/Not Resolved]
  - Dyspnoea [Unknown]

NARRATIVE: CASE EVENT DATE: 20250101
